FAERS Safety Report 15134233 (Version 1)
Quarter: 2018Q3

REPORT INFORMATION
  Report Type: Spontaneous
  Country: ES (occurrence: ES)
  Receive Date: 20180712
  Receipt Date: 20180712
  Transmission Date: 20181010
  Serious: Yes (Other)
  Sender: FDA-Public Use
  Company Number: ES-PFIZER INC-2017109850

PATIENT
  Age: 19 Year
  Sex: Male

DRUGS (3)
  1. HYDROXYPROGESTERONE [Concomitant]
     Active Substance: HYDROXYPROGESTERONE
     Indication: PSORIASIS
     Dosage: 1.5% (OVER A CONTINUOUS TWO?YEAR PERIOD)
  2. CLOBETASOL [Suspect]
     Active Substance: CLOBETASOL
     Indication: PSORIASIS
     Dosage: 3% (OVER A CONTINUOUS TWO?YEAR PERIOD)
  3. MINOXIDIL. [Suspect]
     Active Substance: MINOXIDIL
     Dosage: 3% (OVER A CONTINUOUS TWO?YEAR PERIOD)

REACTIONS (2)
  - Skin striae [Unknown]
  - Drug abuse [Unknown]
